FAERS Safety Report 25460140 (Version 2)
Quarter: 2025Q2

REPORT INFORMATION
  Report Type: Report from Study
  Country: CN (occurrence: CN)
  Receive Date: 20250620
  Receipt Date: 20250626
  Transmission Date: 20250716
  Serious: Yes (Life-Threatening, Hospitalization)
  Sender: STEMLINE THERAPEUTICS
  Company Number: CN-STEMLINE THERAPEUTICS, INC-2025-STML-CN002141

PATIENT

DRUGS (19)
  1. ELACESTRANT [Suspect]
     Active Substance: ELACESTRANT
     Indication: Breast cancer
     Dosage: 345 MG, DAILY
     Route: 048
     Dates: start: 20240827
  2. METHYLCOBALAMIN [Concomitant]
     Active Substance: METHYLCOBALAMIN
     Indication: Hypoaesthesia
     Dosage: 0.5 MG, TID
     Route: 048
     Dates: start: 202402
  3. TRIMETAZIDINE DIHYDROCHLORIDE [Concomitant]
     Active Substance: TRIMETAZIDINE DIHYDROCHLORIDE
     Indication: Renal impairment
     Dosage: 20 MG, TID
     Route: 048
     Dates: start: 202402
  4. RIVAROXABAN [Concomitant]
     Active Substance: RIVAROXABAN
     Indication: Pulmonary embolism
     Dosage: 10 MG, DAILY
     Route: 048
     Dates: start: 202208
  5. PHOSPHOLIPID [Concomitant]
     Active Substance: PHOSPHOLIPID
     Indication: Liver disorder
     Dosage: 456 MG, TID
     Route: 048
     Dates: start: 202404
  6. COENZYME Q10 [Concomitant]
     Active Substance: DIETARY SUPPLEMENT\UBIDECARENONE
     Indication: Gastrointestinal disorder
     Dosage: 100 MG, DAILY
     Route: 048
     Dates: start: 202302
  7. VITAMIN C [Concomitant]
     Active Substance: ASCORBIC ACID
     Indication: Gastrointestinal disorder
     Dosage: 1 G, DAILY
     Route: 048
     Dates: start: 202302
  8. CEFOPERAZONE SODIUM\SULBACTAM SODIUM [Concomitant]
     Active Substance: CEFOPERAZONE SODIUM\SULBACTAM SODIUM
     Indication: Pyrexia
     Dosage: 1 G, DAILY
     Route: 041
     Dates: start: 20241106, end: 20241108
  9. DEXTROSE [Concomitant]
     Active Substance: DEXTROSE MONOHYDRATE
     Indication: Pyrexia
     Dosage: 10 G, DAILY
     Route: 041
     Dates: start: 20241106, end: 20241108
  10. ACETAMINOPHEN\TRAMADOL [Concomitant]
     Active Substance: ACETAMINOPHEN\TRAMADOL
     Indication: Pain
     Route: 048
     Dates: start: 20241106, end: 20241110
  11. ACETAMINOPHEN\TRAMADOL [Concomitant]
     Active Substance: ACETAMINOPHEN\TRAMADOL
     Indication: Pyrexia
  12. DENOSUMAB [Concomitant]
     Active Substance: DENOSUMAB
     Indication: Metastases to bone
     Dosage: 120 MG, Q4WEEKS (ONCE EVERY FOUR WEEKS)
     Route: 058
     Dates: start: 2024
  13. GLUTATHIONE [Concomitant]
     Active Substance: GLUTATHIONE
     Indication: Hepatic failure
     Dosage: 0.4 G, TID
     Route: 048
     Dates: start: 2025
  14. FUROSEMIDE [Concomitant]
     Active Substance: FUROSEMIDE
     Indication: Product used for unknown indication
     Dosage: 20 MG, DAILY
     Route: 048
     Dates: start: 2025
  15. SPIRONOLACTONE [Concomitant]
     Active Substance: SPIRONOLACTONE
     Indication: Product used for unknown indication
     Dosage: 40 MG, DAILY
     Route: 048
     Dates: start: 2025
  16. MONTMORILLONITE [Concomitant]
     Active Substance: MONTMORILLONITE
     Indication: Diarrhoea
     Route: 048
     Dates: start: 20250531, end: 20250603
  17. LEVOFLOXACIN [Concomitant]
     Active Substance: LEVOFLOXACIN
     Indication: Diarrhoea
     Dosage: 0.5 G, DAILY
     Route: 065
     Dates: start: 20250604, end: 20250609
  18. LEVOFLOXACIN [Concomitant]
     Active Substance: LEVOFLOXACIN
     Indication: Anti-infective therapy
  19. BICYCLOL [Concomitant]
     Active Substance: BICYCLOL
     Indication: Hepatic failure
     Dosage: 50 MG, TID
     Route: 048
     Dates: start: 2025

REACTIONS (1)
  - Abdominal distension [Not Recovered/Not Resolved]

NARRATIVE: CASE EVENT DATE: 20250610
